FAERS Safety Report 10027367 (Version 1)
Quarter: 2014Q1

REPORT INFORMATION
  Report Type: Spontaneous
  Country: IN (occurrence: None)
  Receive Date: 20140318
  Receipt Date: 20140318
  Transmission Date: 20141002
  Serious: Yes (Hospitalization)
  Sender: FDA-Public Use
  Company Number: FK201400761

PATIENT
  Age: 37 Year
  Sex: Female

DRUGS (6)
  1. DOXYCYCLINE [Suspect]
     Indication: WOUND
  2. DEXAMETHASONE [Concomitant]
  3. AZITHROMYCIN [Concomitant]
  4. ANTIHISTAMINES [Concomitant]
  5. SALINE [Concomitant]
  6. SALINE COMPRESS [Concomitant]

REACTIONS (2)
  - Drug eruption [None]
  - Drug eruption [None]
